FAERS Safety Report 5964430-9 (Version None)
Quarter: 2008Q4

REPORT INFORMATION
  Report Type: 
  Country: None (occurrence: None)
  Receive Date: 20081124
  Receipt Date: 20081117
  Transmission Date: 20090506
  Serious: Yes (Life-Threatening)
  Sender: FDA-Public Use
  Company Number: IT-ABBOTT-08P-083-0488150-00

PATIENT
  Sex: Female

DRUGS (3)
  1. DEPAKENE [Suspect]
     Indication: PSYCHOTIC DISORDER
     Route: 048
     Dates: start: 20081027, end: 20081030
  2. LORAZEPAM [Suspect]
     Indication: PSYCHOTIC DISORDER
     Route: 048
     Dates: start: 19880101
  3. OXCARBAZEPINE [Suspect]
     Indication: PSYCHOTIC DISORDER
     Route: 048
     Dates: start: 20060101

REACTIONS (3)
  - ORAL DISCOMFORT [None]
  - SOPOR [None]
  - VESTIBULAR DISORDER [None]
